FAERS Safety Report 5442965-5 (Version None)
Quarter: 2007Q3

REPORT INFORMATION
  Report Type: 
  Country: None (occurrence: None)
  Receive Date: 20070905
  Receipt Date: 20070828
  Transmission Date: 20080115
  Serious: Yes (Other)
  Sender: FDA-Public Use
  Company Number: NO-BRISTOL-MYERS SQUIBB COMPANY-13895529

PATIENT
  Age: 69 Year
  Sex: Male

DRUGS (7)
  1. PRAVACHOL [Suspect]
     Indication: BLOOD CHOLESTEROL INCREASED
     Dates: start: 20011219, end: 20051001
  2. DOXYLIN [Concomitant]
     Dates: start: 20030310
  3. BREXIDOL [Concomitant]
     Dates: start: 20050521
  4. PARACET [Concomitant]
     Dates: start: 20040827
  5. VIOXX [Concomitant]
     Dates: start: 20040827
  6. PNEUMOVAX 23 [Concomitant]
     Dates: start: 20070214
  7. APOCILLIN [Concomitant]
     Dates: start: 20070516

REACTIONS (1)
  - PULMONARY FIBROSIS [None]
